FAERS Safety Report 12427076 (Version 1)
Quarter: 2016Q2

REPORT INFORMATION
  Report Type: Spontaneous
  Country: US (occurrence: US)
  Receive Date: 20160601
  Receipt Date: 20160601
  Transmission Date: 20160815
  Serious: Yes (Death, Other)
  Sender: FDA-Public Use
  Company Number: US-TAKEDA-TPA2011A07421

PATIENT

DRUGS (7)
  1. FELODIPINE. [Concomitant]
     Active Substance: FELODIPINE
  2. AVANDIA [Concomitant]
     Active Substance: ROSIGLITAZONE MALEATE
  3. AMARYL [Concomitant]
     Active Substance: GLIMEPIRIDE
  4. ACTOS [Suspect]
     Active Substance: PIOGLITAZONE HYDROCHLORIDE
     Indication: TYPE 2 DIABETES MELLITUS
     Dosage: UNK
     Route: 048
     Dates: start: 20070522, end: 20080609
  5. FUROSEMIDE. [Concomitant]
     Active Substance: FUROSEMIDE
  6. METFORMIN [Concomitant]
     Active Substance: METFORMIN HYDROCHLORIDE
  7. LISINOPRIL. [Concomitant]
     Active Substance: LISINOPRIL

REACTIONS (3)
  - Bladder cancer [Unknown]
  - Death [Fatal]
  - Haematuria [Unknown]

NARRATIVE: CASE EVENT DATE: 200705
